FAERS Safety Report 23067667 (Version 1)
Quarter: 2023Q4

REPORT INFORMATION
  Report Type: Spontaneous
  Country: MY (occurrence: MY)
  Receive Date: 20231016
  Receipt Date: 20231016
  Transmission Date: 20240110
  Serious: Yes (Life-Threatening)
  Sender: FDA-Public Use
  Company Number: MY-Merck Healthcare KGaA-2023480956

PATIENT
  Sex: Female

DRUGS (1)
  1. METFORMIN HYDROCHLORIDE [Suspect]
     Active Substance: METFORMIN HYDROCHLORIDE
     Indication: Diabetes mellitus

REACTIONS (2)
  - Shock [Recovered/Resolved]
  - Lactic acidosis [Recovered/Resolved]
